FAERS Safety Report 10216585 (Version 2)
Quarter: 2014Q2

REPORT INFORMATION
  Report Type: Spontaneous
  Country: JP (occurrence: JP)
  Receive Date: 20140604
  Receipt Date: 20140604
  Transmission Date: 20141212
  Serious: Yes (Life-Threatening)
  Sender: FDA-Public Use
  Company Number: JP-MALLINCKRODT-T201402233

PATIENT
  Age: 71 Year
  Sex: Male

DRUGS (4)
  1. OPTIRAY [Suspect]
     Indication: COMPUTERISED TOMOGRAM
     Dosage: 100 ML, SINGLE
     Route: 042
     Dates: start: 20140513, end: 20140513
  2. DOXAZOSIN MESILATE [Concomitant]
     Dosage: 1 MG, BID
  3. IMIDAPRIL HYDROCHLORIDE [Concomitant]
     Dosage: 5 MG, BID
  4. AMLODIPINE BESILATE [Concomitant]
     Dosage: 5 MG, BID

REACTIONS (1)
  - Anaphylactic shock [Recovering/Resolving]
